FAERS Safety Report 5230083-0 (Version None)
Quarter: 2007Q1

REPORT INFORMATION
  Report Type: 
  Country: None (occurrence: None)
  Receive Date: 20070206
  Receipt Date: 20060906
  Transmission Date: 20070707
  Serious: No
  Sender: FDA-Public Use
  Company Number: US-GLAXOSMITHKLINE-A0582873A

PATIENT
  Age: 56 Year
  Sex: Female

DRUGS (6)
  1. PAXIL CR [Suspect]
     Indication: DEPRESSION
     Dosage: 37.5MG PER DAY
     Route: 048
  2. PAXIL [Suspect]
     Indication: DEPRESSION
     Dosage: 20MG THREE TIMES PER DAY
     Route: 048
     Dates: start: 20040130
  3. CLARITIN-D [Concomitant]
     Route: 065
  4. PREMARIN [Concomitant]
     Route: 065
  5. SYNTHROID [Concomitant]
  6. METHDILAZINE [Concomitant]
     Route: 065

REACTIONS (3)
  - ANXIETY [None]
  - DRUG INEFFECTIVE [None]
  - WEIGHT INCREASED [None]
